FAERS Safety Report 21045287 (Version 1)
Quarter: 2022Q3

REPORT INFORMATION
  Report Type: Spontaneous
  Country: RU (occurrence: RU)
  Receive Date: 20220706
  Receipt Date: 20220706
  Transmission Date: 20221027
  Serious: Yes (Hospitalization)
  Sender: FDA-Public Use
  Company Number: RU-STRIDES ARCOLAB LIMITED-2022SP008254

PATIENT
  Age: 3 Year
  Sex: Male

DRUGS (3)
  1. CARBOPLATIN [Suspect]
     Active Substance: CARBOPLATIN
     Indication: Retinoblastoma
     Dosage: 1250 MILLIGRAM/SQ. METER, CYCLICAL; RECEIVED FOUR COURSES
     Route: 065
  2. ETOPOSIDE [Suspect]
     Active Substance: ETOPOSIDE
     Indication: Retinoblastoma
     Dosage: 1750 MILLIGRAM/SQ. METER, CYCLICAL; RECEIVED FOUR COURSES
     Route: 065
  3. CYCLOPHOSPHAMIDE [Suspect]
     Active Substance: CYCLOPHOSPHAMIDE
     Indication: Retinoblastoma
     Dosage: 6000 MILLIGRAM/SQ. METER, CYCLICAL; RECEIVED FOUR COURSES
     Route: 065

REACTIONS (4)
  - Neutropenic colitis [Recovered/Resolved]
  - Stomatitis [Recovered/Resolved]
  - Febrile neutropenia [Recovered/Resolved]
  - Off label use [Unknown]
